FAERS Safety Report 6312618-X (Version None)
Quarter: 2009Q3

REPORT INFORMATION
  Report Type: 
  Country: None (occurrence: None)
  Receive Date: 20090813
  Receipt Date: 20090803
  Transmission Date: 20100115
  Serious: Yes (Hospitalization)
  Sender: FDA-Public Use
  Company Number: 2008AL008792

PATIENT
  Age: 71 Year
  Sex: Female

DRUGS (27)
  1. DIGOXIN [Suspect]
     Dosage: 0.25MG, DAILY, PO
     Route: 048
     Dates: start: 20070101
  2. COREG [Concomitant]
  3. BACTRIM [Concomitant]
  4. ZAROXOLYN [Concomitant]
  5. PLAVIX [Concomitant]
  6. ZYRTEC [Concomitant]
  7. LASIX [Concomitant]
  8. SIMVASTATIN [Concomitant]
  9. GABAPENTIN [Concomitant]
  10. MICARDIS [Concomitant]
  11. PRILOSEC [Concomitant]
  12. SPIRONOLACTONE [Concomitant]
  13. ASPIRIN [Concomitant]
  14. MELOXICAM [Concomitant]
  15. NOVOLOG [Concomitant]
  16. REQUIP [Concomitant]
  17. FLUOXETINE [Concomitant]
  18. AMITRIPTYLINE [Concomitant]
  19. METHOCARBAMOL [Concomitant]
  20. TRAMADOL HCL [Concomitant]
  21. TEMAZEPAM [Concomitant]
  22. LORATADINE [Concomitant]
  23. METOLAZONE [Concomitant]
  24. MICARDIS HCT [Concomitant]
  25. COUMADIN [Concomitant]
  26. SPIRIVA [Concomitant]
  27. ADVAIR HFA [Concomitant]

REACTIONS (31)
  - ANXIETY [None]
  - ASTHENIA [None]
  - ATRIAL FIBRILLATION [None]
  - ATRIAL FLUTTER [None]
  - BLINDNESS [None]
  - BLOOD PRESSURE DIASTOLIC DECREASED [None]
  - BLOOD PRESSURE INCREASED [None]
  - BRADYCARDIA [None]
  - CARDIAC FAILURE CONGESTIVE [None]
  - CEREBROVASCULAR ACCIDENT [None]
  - CHEST PAIN [None]
  - CONDITION AGGRAVATED [None]
  - CONFUSIONAL STATE [None]
  - DIZZINESS [None]
  - DYSPNOEA [None]
  - ECONOMIC PROBLEM [None]
  - GENERALISED OEDEMA [None]
  - HEART RATE DECREASED [None]
  - HEART RATE IRREGULAR [None]
  - MENTAL STATUS CHANGES [None]
  - MUSCULOSKELETAL PAIN [None]
  - NAUSEA [None]
  - PAIN [None]
  - PAIN IN EXTREMITY [None]
  - PARAESTHESIA [None]
  - PRURITUS [None]
  - SPEECH DISORDER [None]
  - THERAPEUTIC AGENT TOXICITY [None]
  - WEIGHT DECREASED [None]
  - WEIGHT INCREASED [None]
  - WHEEZING [None]
